FAERS Safety Report 25352992 (Version 1)
Quarter: 2025Q2

REPORT INFORMATION
  Report Type: Spontaneous
  Country: US (occurrence: US)
  Receive Date: 20250523
  Receipt Date: 20250523
  Transmission Date: 20250717
  Serious: No
  Sender: PFIZER
  Company Number: US-PFIZER INC-PV202400063359

PATIENT
  Age: 65 Year
  Sex: Female

DRUGS (2)
  1. INLYTA [Suspect]
     Active Substance: AXITINIB
     Indication: Metastases to lung
     Dosage: 3 MG, 2X/DAY (TAKE 3 TABLETS BY MOUTH EVERY 12 HOURS)
     Route: 048
  2. INLYTA [Suspect]
     Active Substance: AXITINIB
     Indication: Thyroid cancer
     Dosage: 2 MG, 2X/DAY (TAKE 2 TABLETS BY MOUTH EVERY 12 HOURS)
     Route: 048
     Dates: start: 20241220

REACTIONS (2)
  - Blood creatinine increased [Unknown]
  - Off label use [Unknown]

NARRATIVE: CASE EVENT DATE: 20241016
